FAERS Safety Report 5853615-8 (Version None)
Quarter: 2008Q3

REPORT INFORMATION
  Report Type: 
  Country: None (occurrence: None)
  Receive Date: 20080822
  Receipt Date: 20080813
  Transmission Date: 20090109
  Serious: Yes (Other)
  Sender: FDA-Public Use
  Company Number: US-JNJFOC-20080802392

PATIENT
  Sex: Female
  Weight: 65.77 kg

DRUGS (4)
  1. REMICADE [Suspect]
     Indication: RHEUMATOID ARTHRITIS
     Route: 042
  2. DAPSONE [Concomitant]
  3. NEXIUM [Concomitant]
  4. BONIVA [Concomitant]

REACTIONS (6)
  - COUGH [None]
  - DYSPNOEA [None]
  - FUNGAL INFECTION [None]
  - GASTROOESOPHAGEAL REFLUX DISEASE [None]
  - MUCOUS MEMBRANE DISORDER [None]
  - RASH [None]
